FAERS Safety Report 6218041-0 (Version None)
Quarter: 2009Q2

REPORT INFORMATION
  Report Type: 
  Country: None (occurrence: None)
  Receive Date: 20090608
  Receipt Date: 20090529
  Transmission Date: 20091009
  Serious: Yes (Other)
  Sender: FDA-Public Use
  Company Number: US-ABBOTT-09P-163-0574678-00

PATIENT
  Sex: Female
  Weight: 88.53 kg

DRUGS (4)
  1. VICODIN ES [Suspect]
     Indication: MUSCLE SPASMS
     Dates: start: 20060101, end: 20081201
  2. VICODIN ES [Suspect]
     Indication: BURSITIS
  3. SYNTHROID [Concomitant]
     Indication: DRUG USE FOR UNKNOWN INDICATION
     Dates: start: 19920101
  4. ACTONEL [Concomitant]
     Indication: DRUG USE FOR UNKNOWN INDICATION

REACTIONS (2)
  - HEPATIC CIRRHOSIS [None]
  - TYPE 2 DIABETES MELLITUS [None]
